FAERS Safety Report 8006423-6 (Version None)
Quarter: 2011Q4

REPORT INFORMATION
  Report Type: 
  Country: None (occurrence: None)
  Receive Date: 20111226
  Receipt Date: 20111219
  Transmission Date: 20120403
  Serious: Yes (Hospitalization)
  Sender: FDA-Public Use
  Company Number: US-ACTELION-A-NJ2011-46348

PATIENT

DRUGS (2)
  1. TRACLEER [Suspect]
     Indication: PULMONARY ARTERIAL HYPERTENSION
     Dosage: UNK
     Route: 048
     Dates: start: 20100616
  2. REVATIO [Concomitant]

REACTIONS (5)
  - IMPAIRED HEALING [None]
  - WOUND [None]
  - MUSCULOSKELETAL STIFFNESS [None]
  - CARDIAC DISORDER [None]
  - STENT PLACEMENT [None]
